FAERS Safety Report 25121412 (Version 1)
Quarter: 2025Q1

REPORT INFORMATION
  Report Type: Spontaneous
  Country: US (occurrence: US)
  Receive Date: 20250326
  Receipt Date: 20250326
  Transmission Date: 20250409
  Serious: No
  Sender: STRIDES
  Company Number: None

PATIENT
  Sex: Male

DRUGS (3)
  1. DEXAMETHASONE [Suspect]
     Active Substance: DEXAMETHASONE
     Indication: Insulin autoimmune syndrome
     Route: 065
  2. MYCOPHENOLATE MOFETIL [Concomitant]
     Active Substance: MYCOPHENOLATE MOFETIL
     Indication: Insulin autoimmune syndrome
     Route: 065
  3. Immunoglobulin [Concomitant]
     Indication: Insulin autoimmune syndrome
     Route: 065

REACTIONS (2)
  - Insulin resistance [Unknown]
  - Hyperglycaemia [Unknown]
